FAERS Safety Report 6524339-9 (Version None)
Quarter: 2009Q4

REPORT INFORMATION
  Report Type: 
  Country: None (occurrence: None)
  Receive Date: 20091231
  Receipt Date: 20091222
  Transmission Date: 20100525
  Serious: Yes (Other)
  Sender: FDA-Public Use
  Company Number: US-GENENTECH-296250

PATIENT
  Sex: Female
  Weight: 75.283 kg

DRUGS (7)
  1. RITUXAN [Suspect]
     Indication: RHEUMATOID ARTHRITIS
     Dosage: 1000 MG, Q2W
     Route: 042
     Dates: start: 20090818
  2. RITUXAN [Suspect]
     Dosage: 1000 MG, Q2W
     Route: 042
     Dates: start: 20090903
  3. METHOTREXATE [Concomitant]
     Indication: DRUG USE FOR UNKNOWN INDICATION
  4. AMBIEN [Concomitant]
     Indication: DRUG USE FOR UNKNOWN INDICATION
  5. ACIPHEX [Concomitant]
     Indication: DRUG USE FOR UNKNOWN INDICATION
  6. BENADRYL [Concomitant]
     Indication: PREMEDICATION
     Dosage: 50 MG, UNK
  7. TYLENOL (CAPLET) [Concomitant]
     Indication: PREMEDICATION
     Dosage: 500 MG, UNK

REACTIONS (2)
  - SERUM SICKNESS [None]
  - SKIN NODULE [None]
